FAERS Safety Report 21691135 (Version 1)
Quarter: 2022Q4

REPORT INFORMATION
  Report Type: Spontaneous
  Country: AU (occurrence: None)
  Receive Date: 20221207
  Receipt Date: 20221207
  Transmission Date: 20230113
  Serious: Yes (Other)
  Sender: FDA-Public Use
  Company Number: AU-ROCHE-3229860

PATIENT
  Age: 68 Year
  Sex: Female

DRUGS (19)
  1. TOCILIZUMAB [Suspect]
     Active Substance: TOCILIZUMAB
     Indication: Product used for unknown indication
     Route: 065
  2. DARZALEX [Suspect]
     Active Substance: DARATUMUMAB
     Indication: Product used for unknown indication
     Route: 065
  3. CEVOSTAMAB [Suspect]
     Active Substance: CEVOSTAMAB
     Indication: Product used for unknown indication
     Route: 065
  4. DEXAMETHASONE [Suspect]
     Active Substance: DEXAMETHASONE
     Indication: Product used for unknown indication
     Route: 065
  5. ALLOPURINOL [Suspect]
     Active Substance: ALLOPURINOL
     Indication: Product used for unknown indication
     Route: 065
  6. ACETAMINOPHEN [Concomitant]
     Active Substance: ACETAMINOPHEN
  7. RASBURICASE [Concomitant]
     Active Substance: RASBURICASE
  8. ENOXAPARIN [Concomitant]
     Active Substance: ENOXAPARIN
  9. ZOMETA [Concomitant]
     Active Substance: ZOLEDRONIC ACID
  10. CHOLECALCIFEROL [Concomitant]
     Active Substance: CHOLECALCIFEROL
  11. LORATADINE [Concomitant]
     Active Substance: LORATADINE
  12. OXYCODONE [Concomitant]
     Active Substance: OXYCODONE
  13. PANTOPRAZOLE [Concomitant]
     Active Substance: PANTOPRAZOLE
  14. NYSTATIN [Concomitant]
     Active Substance: NYSTATIN
  15. BACTRIM [Concomitant]
     Active Substance: SULFAMETHOXAZOLE\TRIMETHOPRIM
  16. BETAMETHASONE [Concomitant]
     Active Substance: BETAMETHASONE
  17. MAGNESIUM ASPARTATE [Concomitant]
     Active Substance: MAGNESIUM ASPARTATE
  18. IOHEXOL [Concomitant]
     Active Substance: IOHEXOL
  19. MIDAZOLAM [Concomitant]
     Active Substance: MIDAZOLAM

REACTIONS (4)
  - Cytokine release syndrome [Unknown]
  - Plasma cell myeloma [Unknown]
  - Rash erythematous [Unknown]
  - Spinal cord compression [Unknown]
